FAERS Safety Report 14181467 (Version 1)
Quarter: 2017Q4

REPORT INFORMATION
  Report Type: Spontaneous
  Country: US (occurrence: US)
  Receive Date: 20171111
  Receipt Date: 20171111
  Transmission Date: 20180321
  Serious: Yes (Disabling, Other)
  Sender: FDA-Public Use
  Company Number: None

PATIENT
  Age: 64 Year
  Sex: Female
  Weight: 72 kg

DRUGS (5)
  1. ADR [Concomitant]
  2. TRIAMCINOLONE ACETONIDE. [Suspect]
     Active Substance: TRIAMCINOLONE ACETONIDE
     Indication: ECZEMA
     Route: 061
     Dates: start: 20140510, end: 20161101
  3. ENALIPRIL [Concomitant]
  4. MULTI VITAMIN [Concomitant]
     Active Substance: VITAMINS
  5. ASP [Concomitant]
     Active Substance: ASPIRIN

REACTIONS (7)
  - Pruritus [None]
  - Chills [None]
  - Skin exfoliation [None]
  - Pain in extremity [None]
  - Nausea [None]
  - Adrenal disorder [None]
  - Burning sensation [None]

NARRATIVE: CASE EVENT DATE: 20161101
